FAERS Safety Report 14556008 (Version 1)
Quarter: 2018Q1

REPORT INFORMATION
  Report Type: Spontaneous
  Country: FR (occurrence: FR)
  Receive Date: 20180221
  Receipt Date: 20180221
  Transmission Date: 20180509
  Serious: Yes (Hospitalization)
  Sender: FDA-Public Use
  Company Number: FR-AXELLIA-001382

PATIENT
  Age: 41 Year
  Sex: Female
  Weight: 59 kg

DRUGS (9)
  1. VANCOMYCIN [Suspect]
     Active Substance: VANCOMYCIN
     Indication: ANTIBIOTIC PROPHYLAXIS
     Route: 042
     Dates: start: 20171012, end: 20171012
  2. POVIDONE-IODINE. [Suspect]
     Active Substance: POVIDONE-IODINE
     Indication: PREOPERATIVE CARE
     Route: 003
     Dates: start: 20171011, end: 20171012
  3. PROPOFOL. [Concomitant]
     Active Substance: PROPOFOL
  4. APIXABAN [Concomitant]
     Active Substance: APIXABAN
  5. ATENOLOL/ATENOLOL HYDROCHLORIDE [Concomitant]
  6. KARDEGIC [Concomitant]
     Active Substance: ASPIRIN DL-LYSINE
  7. FLECAINE [Concomitant]
     Active Substance: FLECAINIDE
  8. KETAMINE [Concomitant]
     Active Substance: KETAMINE
  9. SUFENTANIL [Concomitant]
     Active Substance: SUFENTANIL

REACTIONS (1)
  - Eczema [Recovered/Resolved]

NARRATIVE: CASE EVENT DATE: 20171014
